FAERS Safety Report 9540129 (Version 1)
Quarter: 2013Q3

REPORT INFORMATION
  Report Type: Spontaneous
  Country: US (occurrence: US)
  Receive Date: 20130920
  Receipt Date: 20130920
  Transmission Date: 20140515
  Serious: Yes (Other)
  Sender: FDA-Public Use
  Company Number: US-BAXTER-2013BAX036174

PATIENT
  Age: 61 Year
  Sex: Male

DRUGS (3)
  1. OSMITROL INJECTION (MANNITOL INJECTION, USP) [Suspect]
     Indication: SURGERY
     Route: 042
  2. AMINOPHYLLINE [Concomitant]
     Indication: ASTHMA
     Route: 048
  3. PREDNISONE [Concomitant]
     Indication: ASTHMA
     Route: 048

REACTIONS (1)
  - Bronchospasm [Recovered/Resolved]
